FAERS Safety Report 18781409 (Version 2)
Quarter: 2021Q3

REPORT INFORMATION
  Report Type: Other
  Country: ZA (occurrence: ZA)
  Receive Date: 20210125
  Receipt Date: 20210713
  Transmission Date: 20211014
  Serious: Yes (Other)
  Sender: FDA-Public Use
  Company Number: ZA-ROCHE-2755098

PATIENT
  Age: 78 Year
  Sex: Male

DRUGS (5)
  1. LUCENTIS [Suspect]
     Active Substance: RANIBIZUMAB
     Route: 050
  2. LUCENTIS [Suspect]
     Active Substance: RANIBIZUMAB
     Indication: AGE-RELATED MACULAR DEGENERATION
     Dosage: 0.05 ML (0.05 MG SIX TO EIGHT WEEKLY INTERVALS FOR INJECTION)
     Route: 050
     Dates: start: 20190320
  3. LUCENTIS [Suspect]
     Active Substance: RANIBIZUMAB
     Dosage: 0.05 MG  (SIX TO EIGHT WEEKLY INTERVALS FOR INJECTION)
     Route: 047
     Dates: start: 20190327
  4. LUCENTIS [Suspect]
     Active Substance: RANIBIZUMAB
     Dosage: 0.05 MG  (SIX TO EIGHT WEEKLY INTERVALS FOR INJECTION)
     Route: 047
     Dates: start: 20190327
  5. LUCENTIS [Suspect]
     Active Substance: RANIBIZUMAB
     Dosage: 0.05 MG (SIX TO EIGHT WEEKLY INTERVALS FOR INJECTION)
     Route: 047
     Dates: start: 20190327

REACTIONS (3)
  - Retinal thickening [Unknown]
  - Retinal exudates [Not Recovered/Not Resolved]
  - Visual acuity reduced [Not Recovered/Not Resolved]

NARRATIVE: CASE EVENT DATE: 20200320
